FAERS Safety Report 4680979-3 (Version None)
Quarter: 2005Q2

REPORT INFORMATION
  Report Type: 
  Country: None (occurrence: None)
  Receive Date: 20050601
  Receipt Date: 20050601
  Transmission Date: 20051028
  Serious: Yes (Hospitalization)
  Sender: FDA-Public Use
  Company Number: None

PATIENT
  Age: 78 Year
  Sex: Male
  Weight: 73.9363 kg

DRUGS (1)
  1. BENAZEPRIL  40 MG [Suspect]
     Indication: HYPERTENSION
     Dosage: 40 MG  BID ORAL
     Route: 048
     Dates: start: 20000401, end: 20050524

REACTIONS (1)
  - ANGIONEUROTIC OEDEMA [None]
